FAERS Safety Report 9151903 (Version 1)
Quarter: 2013Q1

REPORT INFORMATION
  Report Type: Spontaneous
  Country: US (occurrence: US)
  Receive Date: 20130308
  Receipt Date: 20130308
  Transmission Date: 20140127
  Serious: No
  Sender: FDA-Public Use
  Company Number: US-B.I. PHARMACEUTICALS,INC./RIDGEFIELD-2013-BI-06093BP

PATIENT
  Sex: Female

DRUGS (7)
  1. COMBIVENT [Suspect]
     Indication: ASTHMA
     Route: 055
     Dates: start: 2006
  2. MIRAPEX [Suspect]
     Indication: RESTLESS LEGS SYNDROME
     Dosage: 2 MG
     Dates: start: 201212
  3. SINGULAIR [Concomitant]
     Route: 048
  4. ADVAIR [Concomitant]
     Route: 055
  5. LISINOPRIL [Concomitant]
     Dosage: 20 MG
     Route: 048
  6. HYDROCHLORTHIAZIDE [Concomitant]
     Dosage: 25 MG
     Route: 048
  7. LEVOTHYROXINE [Concomitant]
     Dosage: 100 MCG
     Route: 048

REACTIONS (3)
  - Restless legs syndrome [Not Recovered/Not Resolved]
  - Poor quality sleep [Not Recovered/Not Resolved]
  - Arthritis [Not Recovered/Not Resolved]
